FAERS Safety Report 4619153-5 (Version None)
Quarter: 2005Q1

REPORT INFORMATION
  Report Type: 
  Country: None (occurrence: None)
  Receive Date: 20050325
  Receipt Date: 20050315
  Transmission Date: 20050727
  Serious: Yes (Death)
  Sender: FDA-Public Use
  Company Number: US-GLAXOSMITHKLINE-B0374717A

PATIENT
  Age: 14 Month
  Sex: Male

DRUGS (5)
  1. DIGOXIN [Suspect]
     Dosage: .7MG SINGLE DOSE
     Route: 042
  2. ANTIBIOTICS [Concomitant]
     Indication: UPPER RESPIRATORY TRACT INFECTION
     Route: 042
  3. FUROSEMIDE [Concomitant]
     Route: 048
  4. MORPHINE [Concomitant]
     Route: 065
  5. CHLORAL HYDRATE [Concomitant]
     Route: 065

REACTIONS (7)
  - ACCIDENTAL OVERDOSE [None]
  - ARRHYTHMIA [None]
  - CARDIAC ARREST [None]
  - MEDICATION ERROR [None]
  - OXYGEN SATURATION DECREASED [None]
  - RESPIRATORY DISTRESS [None]
  - VOMITING [None]
